FAERS Safety Report 10754688 (Version 1)
Quarter: 2015Q1

REPORT INFORMATION
  Report Type: Spontaneous
  Country: US (occurrence: US)
  Receive Date: 20150202
  Receipt Date: 20150202
  Transmission Date: 20150721
  Serious: Yes (Hospitalization, Other)
  Sender: FDA-Public Use
  Company Number: US-AMGEN-USASP2015007997

PATIENT
  Age: 68 Year
  Sex: Female

DRUGS (1)
  1. ENBREL [Suspect]
     Active Substance: ETANERCEPT
     Indication: PSORIATIC ARTHROPATHY
     Dosage: UNK
     Route: 065
     Dates: start: 2013, end: 2014

REACTIONS (9)
  - Tracheostomy [Recovered/Resolved]
  - Hip fracture [Recovering/Resolving]
  - Meningitis fungal [Recovered/Resolved]
  - Clostridium difficile colitis [Recovered/Resolved]
  - Exostosis [Recovered/Resolved]
  - Spinal operation [Recovered/Resolved]
  - Fall [Not Recovered/Not Resolved]
  - Spinal fracture [Recovered/Resolved]
  - Thrombotic thrombocytopenic purpura [Recovered/Resolved]

NARRATIVE: CASE EVENT DATE: 2014
